FAERS Safety Report 17683321 (Version 2)
Quarter: 2020Q2

REPORT INFORMATION
  Report Type: Report from Study
  Country: KR (occurrence: KR)
  Receive Date: 20200420
  Receipt Date: 20200513
  Transmission Date: 20200714
  Serious: Yes (Hospitalization)
  Sender: FDA-Public Use
  Company Number: KR-CELLTRION INC.-2020KR020692

PATIENT

DRUGS (16)
  1. TRUXIMA [Suspect]
     Active Substance: RITUXIMAB-ABBS
     Dosage: 735 MG EVERY 2 WEEKS
     Dates: start: 20200214
  2. METHOTREXATE. [Concomitant]
     Active Substance: METHOTREXATE
     Indication: DIFFUSE LARGE B-CELL LYMPHOMA
     Dosage: 500 MG/M2 + 200 ML OF 5% DW IS ADMINISTERED IV FOR 15 MINUTES
     Route: 042
  3. KANARB [Concomitant]
     Indication: HYPERTENSION
     Dosage: 30 MG, 1 TAB QD
     Route: 048
     Dates: start: 20200102
  4. METHOTREXATE. [Concomitant]
     Active Substance: METHOTREXATE
     Dosage: 500 ML OF 3000 MG/M2 + 5% DW IS ADMINISTERED AS IV FOR 3 HOURS
     Route: 042
  5. CITOPCIN [CIPROFLOXACIN HYDROCHLORIDE] [Concomitant]
     Indication: INFECTION PROPHYLAXIS
     Dosage: 250 MG, 1TAB BID
     Route: 048
     Dates: start: 20191211
  6. LANSTON [Concomitant]
     Active Substance: LANSOPRAZOLE
     Indication: GASTRITIS PROPHYLAXIS
     Dosage: 15 MG, 1CAP QD
     Route: 048
     Dates: start: 20191211
  7. RIPERIDONE [Concomitant]
     Active Substance: RISPERIDONE
     Indication: DELIRIUM
     Dosage: 1 MG, 1TAB QD
     Route: 048
     Dates: start: 20191214
  8. DUPHALAC EASY [Concomitant]
     Active Substance: LACTULOSE
     Indication: CONSTIPATION
     Dosage: 15 ML, 1 PACK, BID
     Route: 048
     Dates: start: 20191211
  9. METHOTREXATE. [Concomitant]
     Active Substance: METHOTREXATE
     Dosage: 4425 MG EVERY 2 WEEKS (INDUCTION THERAPY DAY 2)
     Dates: start: 20200215
  10. KEPPRA [Concomitant]
     Active Substance: LEVETIRACETAM
     Indication: SEIZURE PROPHYLAXIS
     Dosage: 500 MG, BID
     Route: 048
     Dates: start: 20191121
  11. TRUXIMA [Suspect]
     Active Substance: RITUXIMAB-ABBS
     Indication: DIFFUSE LARGE B-CELL LYMPHOMA
     Dosage: 740 MG QD (500 MG/M2 + 5%DW 500 ML IVF) ON DAY 1
     Route: 042
     Dates: start: 20191205, end: 20200214
  12. TRAJENTA [Concomitant]
     Active Substance: LINAGLIPTIN
     Indication: DIABETES MELLITUS
     Dosage: 5 MG, 1TAB QD
     Route: 048
     Dates: start: 20200102
  13. LIPITOR [Concomitant]
     Active Substance: ATORVASTATIN CALCIUM
     Indication: HYPERTENSION
     Dosage: 10 MG, TAB QD
     Route: 048
     Dates: start: 2009
  14. SEPTRIN [Concomitant]
     Active Substance: SULFAMETHOXAZOLE\TRIMETHOPRIM
     Indication: INFECTION PROPHYLAXIS
     Dosage: 480 MG, 1TAB QD
     Route: 048
     Dates: start: 20191211
  15. PLUNAZOLE [Concomitant]
     Indication: INFECTION PROPHYLAXIS
     Dosage: 50 MG, 2CAP QD
     Route: 048
     Dates: start: 20191211
  16. QUETAPIN [Concomitant]
     Indication: DELIRIUM
     Dosage: 12.5 MG, 5TAB QD
     Route: 048
     Dates: start: 20191211

REACTIONS (2)
  - Overdose [Unknown]
  - Blood creatinine increased [Recovered/Resolved]

NARRATIVE: CASE EVENT DATE: 20200310
